FAERS Safety Report 6974416-3 (Version None)
Quarter: 2010Q3

REPORT INFORMATION
  Report Type: 
  Country: None (occurrence: None)
  Receive Date: 20100909
  Receipt Date: 20080415
  Transmission Date: 20110219
  Serious: No
  Sender: FDA-Public Use
  Company Number: US-WYE-H03107408

PATIENT
  Sex: Male
  Weight: 90.8 kg

DRUGS (3)
  1. PROTONIX [Suspect]
     Indication: GASTROOESOPHAGEAL REFLUX DISEASE
     Route: 048
     Dates: start: 20071201, end: 20080101
  2. PROTONIX [Suspect]
     Dosage: ^SPLIT CAPSULE IN HALF^
     Route: 048
     Dates: start: 20080101, end: 20080201
  3. PROTONIX [Suspect]
     Route: 048
     Dates: start: 20080201, end: 20080101

REACTIONS (2)
  - ABDOMINAL DISCOMFORT [None]
  - BOWEL MOVEMENT IRREGULARITY [None]
